FAERS Safety Report 6530344-9 (Version None)
Quarter: 2010Q1

REPORT INFORMATION
  Report Type: 
  Country: None (occurrence: None)
  Receive Date: 20100107
  Receipt Date: 20091221
  Transmission Date: 20100710
  Serious: Yes (Hospitalization)
  Sender: FDA-Public Use
  Company Number: PHHY2009IL58116

PATIENT
  Age: 22 Year
  Sex: Female

DRUGS (4)
  1. CARBAMAZEPINE [Suspect]
     Indication: CONVULSION
     Dosage: 200 MG, BID
  2. CARBAMAZEPINE [Suspect]
     Indication: ANXIETY
     Dosage: 200 MG, TID
  3. FLUOXETINE [Concomitant]
     Indication: ANXIETY
     Dosage: 20 MG/DAY
  4. FLUOXETINE [Concomitant]
     Indication: CONVULSION

REACTIONS (19)
  - ABDOMINAL CAVITY DRAINAGE [None]
  - ABDOMINAL DISTENSION [None]
  - ABDOMINAL PAIN [None]
  - AMENORRHOEA [None]
  - ANTICONVULSANT DRUG LEVEL DECREASED [None]
  - ASCITES [None]
  - DYSPNOEA [None]
  - ILEUS [None]
  - NAUSEA [None]
  - OMENTECTOMY [None]
  - OVARIAN GRANULOSA-THECA CELL TUMOUR [None]
  - PAIN [None]
  - PALLOR [None]
  - PERITONEAL DISORDER [None]
  - PERITONITIS SCLEROSING [None]
  - PLEURAL EFFUSION [None]
  - SALPINGO-OOPHORECTOMY UNILATERAL [None]
  - SMALL INTESTINAL OBSTRUCTION [None]
  - VOMITING [None]
